FAERS Safety Report 6144052-X (Version None)
Quarter: 2009Q2

REPORT INFORMATION
  Report Type: 
  Country: None (occurrence: None)
  Receive Date: 20090401
  Receipt Date: 20090320
  Transmission Date: 20091009
  Serious: Yes (Hospitalization)
  Sender: FDA-Public Use
  Company Number: 2009AL001662

PATIENT
  Sex: Female

DRUGS (2)
  1. ALPRAZOLAM [Suspect]
  2. NIMESULIDE [Concomitant]

REACTIONS (1)
  - POISONING [None]
